FAERS Safety Report 6824679-X (Version None)
Quarter: 2010Q3

REPORT INFORMATION
  Report Type: 
  Country: None (occurrence: None)
  Receive Date: 20100708
  Receipt Date: 20061102
  Transmission Date: 20110219
  Serious: No
  Sender: FDA-Public Use
  Company Number: US-PFIZER INC-2006139672

PATIENT
  Age: 76 Year
  Sex: Female
  Weight: 64.41 kg

DRUGS (6)
  1. CHANTIX [Suspect]
     Indication: EX-TOBACCO USER
     Dates: start: 20061025
  2. WARFARIN SODIUM [Concomitant]
  3. ZIAC [Concomitant]
  4. LIPITOR [Concomitant]
  5. XANAX [Concomitant]
  6. RESTORIL [Concomitant]

REACTIONS (1)
  - HEADACHE [None]
